FAERS Safety Report 6177088-3 (Version None)
Quarter: 2009Q2

REPORT INFORMATION
  Report Type: 
  Country: None (occurrence: None)
  Receive Date: 20090430
  Receipt Date: 20090430
  Transmission Date: 20091009
  Serious: Yes (Disabling)
  Sender: FDA-Public Use
  Company Number: None

PATIENT
  Age: 55 Year
  Sex: Male
  Weight: 106 kg

DRUGS (2)
  1. CETUXIMAB [Suspect]
     Indication: HEAD AND NECK CANCER
     Dosage: 460 MG WEEKLY IV
     Route: 042
     Dates: start: 20081222, end: 20090105
  2. CETUXIMAB [Suspect]
     Indication: RECURRENT CANCER
     Dosage: 460 MG WEEKLY IV
     Route: 042
     Dates: start: 20081222, end: 20090105

REACTIONS (2)
  - DERMATITIS ACNEIFORM [None]
  - RASH PRURITIC [None]
